FAERS Safety Report 5826684-9 (Version None)
Quarter: 2008Q3

REPORT INFORMATION
  Report Type: 
  Country: None (occurrence: None)
  Receive Date: 20080730
  Receipt Date: 20080514
  Transmission Date: 20090109
  Serious: No
  Sender: FDA-Public Use
  Company Number: US-BAYER-200812270BCC

PATIENT
  Age: 32 Year
  Sex: Female
  Weight: 113 kg

DRUGS (3)
  1. ALEVE (CAPLET) [Suspect]
     Indication: TOOTHACHE
     Dosage: TOTAL DAILY DOSE: 440 MG  UNIT DOSE: 220 MG
     Route: 048
  2. TEGRETOL [Concomitant]
  3. ALLEGRA [Concomitant]

REACTIONS (1)
  - TOOTHACHE [None]
